FAERS Safety Report 6650331-X (Version None)
Quarter: 2010Q1

REPORT INFORMATION
  Report Type: 
  Country: None (occurrence: None)
  Receive Date: 20100325
  Receipt Date: 20100317
  Transmission Date: 20100710
  Serious: Yes (Hospitalization, Other)
  Sender: FDA-Public Use
  Company Number: PHHY2009CA14994

PATIENT
  Sex: Female

DRUGS (1)
  1. ZOMETA [Suspect]
     Indication: BREAST CANCER METASTATIC
     Dosage: 4 MG, TIW
     Route: 042
     Dates: start: 20080822

REACTIONS (27)
  - ASTHENIA [None]
  - BLOOD ALBUMIN DECREASED [None]
  - BLOOD ALKALINE PHOSPHATASE INCREASED [None]
  - BLOOD BILIRUBIN DECREASED [None]
  - BLOOD CALCIUM DECREASED [None]
  - BLOOD GLUCOSE INCREASED [None]
  - BLOOD POTASSIUM DECREASED [None]
  - BLOOD UREA DECREASED [None]
  - DEPRESSED MOOD [None]
  - EOSINOPHIL COUNT DECREASED [None]
  - FALL [None]
  - FATIGUE [None]
  - FEMUR FRACTURE [None]
  - HAEMATOCRIT DECREASED [None]
  - HAEMOGLOBIN DECREASED [None]
  - LYMPHOCYTE COUNT DECREASED [None]
  - MALAISE [None]
  - MEAN CELL HAEMOGLOBIN INCREASED [None]
  - MEAN PLATELET VOLUME DECREASED [None]
  - METASTASES TO CENTRAL NERVOUS SYSTEM [None]
  - MONOCYTE COUNT INCREASED [None]
  - NAUSEA [None]
  - PLATELET COUNT INCREASED [None]
  - RADIOTHERAPY [None]
  - RED BLOOD CELL COUNT DECREASED [None]
  - RED CELL DISTRIBUTION WIDTH INCREASED [None]
  - VOMITING [None]
